FAERS Safety Report 9423839 (Version 1)
Quarter: 2013Q3

REPORT INFORMATION
  Report Type: Spontaneous
  Country: IT (occurrence: IT)
  Receive Date: 20130729
  Receipt Date: 20130729
  Transmission Date: 20140515
  Serious: Yes (Other)
  Sender: FDA-Public Use
  Company Number: IT-ELI_LILLY_AND_COMPANY-IT201307008433

PATIENT
  Sex: Female

DRUGS (1)
  1. HUMAN INSULIN (RDNA ORIGIN) NPH [Suspect]
     Indication: DIABETES MELLITUS

REACTIONS (3)
  - Maternal exposure during pregnancy [Unknown]
  - Caesarean section [None]
  - Weight increased [None]
